FAERS Safety Report 5350029-4 (Version None)
Quarter: 2007Q2

REPORT INFORMATION
  Report Type: 
  Country: None (occurrence: None)
  Receive Date: 20070510
  Receipt Date: 20061221
  Transmission Date: 20071010
  Serious: Yes (Other)
  Sender: FDA-Public Use
  Company Number: 2006S1000310

PATIENT
  Sex: Female

DRUGS (2)
  1. CUBICIN [Suspect]
     Indication: ENDOCARDITIS
     Dates: start: 20061124
  2. CUBICIN [Suspect]
     Indication: STAPHYLOCOCCAL INFECTION
     Dates: start: 20061124

REACTIONS (2)
  - CARDIAC FAILURE [None]
  - EJECTION FRACTION DECREASED [None]
